FAERS Safety Report 15402871 (Version 1)
Quarter: 2018Q3

REPORT INFORMATION
  Report Type: Spontaneous
  Country: DE (occurrence: DE)
  Receive Date: 20180919
  Receipt Date: 20180919
  Transmission Date: 20181010
  Serious: Yes (Hospitalization, Other)
  Sender: FDA-Public Use
  Company Number: DE-BAYER-2018-033760

PATIENT
  Age: 80 Year
  Sex: Male
  Weight: 86 kg

DRUGS (8)
  1. ACETYLSALICYLIC ACID({=100 MG) [Suspect]
     Active Substance: ASPIRIN
     Indication: CEREBROVASCULAR ACCIDENT
     Dosage: DAILY DOSE: 100 MG MILLIGRAM(S) EVERY DAY; 100 MG, QD
     Route: 065
  2. APIXABAN [Interacting]
     Active Substance: APIXABAN
     Indication: THROMBOSIS PROPHYLAXIS
     Dosage: DAILY DOSE: 5 MG MILLIGRAM(S) EVERY DAY; 5 MG, QD
     Route: 065
  3. METOPROLOL. [Concomitant]
     Active Substance: METOPROLOL
  4. METFORMIN [Concomitant]
     Active Substance: METFORMIN HYDROCHLORIDE
     Indication: PRODUCT USED FOR UNKNOWN INDICATION
     Route: 065
  5. CAPTOPRIL. [Concomitant]
     Active Substance: CAPTOPRIL
     Indication: PRODUCT USED FOR UNKNOWN INDICATION
     Route: 065
  6. ATORVASTATIN [Concomitant]
     Active Substance: ATORVASTATIN
     Indication: PRODUCT USED FOR UNKNOWN INDICATION
     Route: 065
  7. ACETYLSALICYLIC ACID({=100 MG) [Interacting]
     Active Substance: ASPIRIN
     Indication: CORONARY ARTERY DISEASE
  8. ACETYLSALICYLIC ACID({=100 MG) [Interacting]
     Active Substance: ASPIRIN
     Indication: THROMBOSIS PROPHYLAXIS

REACTIONS (4)
  - C-reactive protein increased [Unknown]
  - Haemoglobin decreased [Unknown]
  - Post procedural haematoma [Recovered/Resolved]
  - Labelled drug-drug interaction medication error [Unknown]

NARRATIVE: CASE EVENT DATE: 20171011
